FAERS Safety Report 16777276 (Version 1)
Quarter: 2019Q3

REPORT INFORMATION
  Report Type: Spontaneous
  Country: FR (occurrence: FR)
  Receive Date: 20190905
  Receipt Date: 20190905
  Transmission Date: 20191005
  Serious: Yes (Death, Hospitalization)
  Sender: FDA-Public Use
  Company Number: FR-ALLERGAN-1936109US

PATIENT
  Sex: Male
  Weight: 71 kg

DRUGS (10)
  1. SILODOSIN - BP [Suspect]
     Active Substance: SILODOSIN
     Indication: PRODUCT USED FOR UNKNOWN INDICATION
     Dosage: UNK
     Route: 065
  2. LIBTAYO [Suspect]
     Active Substance: CEMIPLIMAB-RWLC
     Indication: SQUAMOUS CELL CARCINOMA OF SKIN
     Dosage: 3 MG/KG, 3 MG/KG EVERY 2 WEEKS
     Route: 042
     Dates: start: 20190304, end: 20190612
  3. PANTOPRAZOLE [Concomitant]
     Active Substance: PANTOPRAZOLE
  4. AMIODARONE [Concomitant]
     Active Substance: AMIODARONE
  5. ADENURIC [Concomitant]
     Active Substance: FEBUXOSTAT
  6. DIFFU K [Concomitant]
     Active Substance: POTASSIUM CHLORIDE
  7. TAHOR [Concomitant]
     Active Substance: ATORVASTATIN CALCIUM
  8. PREVISCAN [Concomitant]
  9. INSULINE [Concomitant]
     Active Substance: INSULIN NOS
  10. LASILIX [Concomitant]
     Active Substance: FUROSEMIDE

REACTIONS (2)
  - Lung infection [Fatal]
  - Dehydration [Fatal]
